FAERS Safety Report 6211146-X (Version None)
Quarter: 2009Q2

REPORT INFORMATION
  Report Type: 
  Country: None (occurrence: None)
  Receive Date: 20090602
  Receipt Date: 20090526
  Transmission Date: 20091009
  Serious: Yes (Death)
  Sender: FDA-Public Use
  Company Number: US-ALLERGAN-0907376US

PATIENT
  Age: 85 Year
  Sex: Male

DRUGS (1)
  1. BOTULINUM TOXIN TYPE A [Suspect]
     Indication: OESOPHAGEAL ACHALASIA
     Dosage: 80 UNITS, SINGLE
     Route: 030

REACTIONS (1)
  - CARDIAC ARREST [None]
